FAERS Safety Report 6718431-3 (Version None)
Quarter: 2010Q2

REPORT INFORMATION
  Report Type: 
  Country: None (occurrence: None)
  Receive Date: 20100510
  Receipt Date: 20100428
  Transmission Date: 20101027
  Serious: Yes (Hospitalization, Other)
  Sender: FDA-Public Use
  Company Number: US-WYE-H14868110

PATIENT
  Age: 59 Year
  Sex: Female

DRUGS (4)
  1. EFFEXOR XR [Suspect]
     Indication: DEPRESSION
     Route: 048
  2. EFFEXOR XR [Suspect]
     Indication: ANXIETY
  3. VENLAFAXINE HYDROCHLORIDE [Suspect]
     Indication: DEPRESSION
     Dosage: UNKNOWN DOSE
  4. VENLAFAXINE HYDROCHLORIDE [Suspect]
     Indication: ANXIETY

REACTIONS (6)
  - CRYING [None]
  - DRUG DEPENDENCE [None]
  - DRUG WITHDRAWAL SYNDROME [None]
  - EXPIRED DRUG ADMINISTERED [None]
  - SUICIDAL IDEATION [None]
  - TINNITUS [None]
